FAERS Safety Report 13499198 (Version 3)
Quarter: 2017Q2

REPORT INFORMATION
  Report Type: Spontaneous
  Country: JP (occurrence: JP)
  Receive Date: 20170501
  Receipt Date: 20170612
  Transmission Date: 20170830
  Serious: Yes (Other)
  Sender: FDA-Public Use
  Company Number: JP-JNJFOC-20170430393

PATIENT
  Age: 44 Year
  Sex: Male
  Weight: 85 kg

DRUGS (4)
  1. LEVOGLUTAMIDE W/SODIUM GUALENATE [Suspect]
     Active Substance: GLUTAMINE\SODIUM GUALENATE
     Indication: GASTRITIS
     Route: 048
  2. METFORMIN HYDROCHLORIDE. [Concomitant]
     Active Substance: METFORMIN HYDROCHLORIDE
     Indication: DIABETES MELLITUS
     Route: 048
     Dates: start: 20160206
  3. CANAGLU [Suspect]
     Active Substance: CANAGLIFLOZIN
     Indication: DIABETES MELLITUS
     Route: 048
     Dates: start: 20170317, end: 20170324
  4. AVAPRO [Concomitant]
     Active Substance: IRBESARTAN
     Indication: HYPERTENSION
     Route: 048
     Dates: start: 20151006

REACTIONS (3)
  - Atrial fibrillation [Recovered/Resolved]
  - Asthenia [Recovered/Resolved]
  - Epistaxis [Recovered/Resolved]

NARRATIVE: CASE EVENT DATE: 20170320
